FAERS Safety Report 8033244-0 (Version None)
Quarter: 2011Q4

REPORT INFORMATION
  Report Type: 
  Country: None (occurrence: None)
  Receive Date: 20111227
  Receipt Date: 20111124
  Transmission Date: 20120403
  Serious: Yes (Life-Threatening, Hospitalization, Disabling, Other)
  Sender: FDA-Public Use
  Company Number: 2011SP057312

PATIENT
  Age: 61 Year
  Sex: Male
  Weight: 68.5 kg

DRUGS (33)
  1. DEXAMETHASONE [Concomitant]
  2. EBASTINE [Concomitant]
  3. ZOFRAN [Concomitant]
  4. LYRICA [Concomitant]
  5. DEXAMETHASONE [Concomitant]
  6. DEXAMETHASONE [Concomitant]
  7. DEXAMETHASONE [Concomitant]
  8. PANTOPRAZOLE [Concomitant]
  9. RAMIPRIL [Concomitant]
  10. VOMEX A [Concomitant]
  11. ATROPINE [Concomitant]
  12. TEMOZOLOMIDE [Suspect]
     Indication: GLIOBLASTOMA MULTIFORME
     Dosage: 250 MG;PO
     Route: 048
     Dates: start: 20111114, end: 20111117
  13. BEVACIZUMAB (BEVACIZUMAB) [Suspect]
     Indication: GLIOBLASTOMA MULTIFORME
     Dosage: 3690 MG;QOW;IV
     Route: 042
     Dates: start: 20100803
  14. PANTOPRAZOLE [Concomitant]
  15. SIMVASTATIN [Concomitant]
  16. DIAZEPAM [Concomitant]
  17. TORSEMIDE [Concomitant]
  18. TETRAZEPAM [Concomitant]
  19. ASPIRIN [Concomitant]
  20. DEXAMETHASONE [Concomitant]
  21. NOVALGIN [Concomitant]
  22. METOCLOPRAMIDE [Concomitant]
  23. RAMIPRIL [Concomitant]
  24. TEGRETOL [Concomitant]
  25. DEXAMETHASONE [Concomitant]
  26. DEXAMETHASONE [Concomitant]
  27. VITAMIN B1 TAB [Concomitant]
  28. LEUCOVORIN CALCIUM [Concomitant]
  29. PANTOPRAZOLE [Concomitant]
  30. ATROPINE [Concomitant]
  31. CARBAMAZEPINE [Concomitant]
  32. CARBAMAZEPINE [Concomitant]
  33. ACYCLOVIR [Concomitant]

REACTIONS (7)
  - HEMIPARESIS [None]
  - EPISTAXIS [None]
  - GLIOBLASTOMA MULTIFORME [None]
  - THROMBOCYTOPENIA [None]
  - LEUKOPENIA [None]
  - NEOPLASM PROGRESSION [None]
  - CEREBRAL INFARCTION [None]
